FAERS Safety Report 14351739 (Version 2)
Quarter: 2018Q1

REPORT INFORMATION
  Report Type: Spontaneous
  Country: PL (occurrence: PL)
  Receive Date: 20180104
  Receipt Date: 20180209
  Transmission Date: 20180509
  Serious: Yes (Hospitalization)
  Sender: FDA-Public Use
  Company Number: PL-GLAXOSMITHKLINE-PL2017200225

PATIENT
  Age: 12 Year
  Sex: Female

DRUGS (10)
  1. LOTEMAX [Suspect]
     Active Substance: LOTEPREDNOL ETABONATE
     Indication: KERATITIS
     Dosage: UNK
     Route: 061
  2. TOBREX [Suspect]
     Active Substance: TOBRAMYCIN
     Indication: KERATITIS
     Dosage: UNK
     Route: 061
  3. ERYTHROMYCIN. [Suspect]
     Active Substance: ERYTHROMYCIN
     Indication: KERATITIS
     Dosage: UNK
     Route: 065
  4. DEXAVEN [Suspect]
     Active Substance: DEXAMETHASONE
     Indication: KERATITIS
     Dosage: UNK
     Route: 065
  5. DIFADOL [Suspect]
     Active Substance: DICLOFENAC SODIUM
     Indication: KERATITIS
     Dosage: UNK
     Route: 065
  6. CEFUROXIME. [Suspect]
     Active Substance: CEFUROXIME
     Indication: KERATITIS
     Dosage: UNK
     Route: 042
  7. INDOCOLLYRE [Suspect]
     Active Substance: INDOMETHACIN
     Indication: KERATITIS
     Dosage: UNK
     Route: 061
  8. OFTAQUIX [Suspect]
     Active Substance: LEVOFLOXACIN
     Indication: KERATITIS
     Dosage: UNK
     Route: 061
  9. OPATANOL [Suspect]
     Active Substance: OLOPATADINE
     Indication: KERATITIS
     Dosage: UNK
     Route: 061
  10. CORNEREGEL (DEXPANTHENOL) [Suspect]
     Active Substance: DEXPANTHENOL
     Indication: KERATITIS
     Dosage: UNK
     Route: 061

REACTIONS (3)
  - Disease progression [Recovering/Resolving]
  - Drug ineffective [Unknown]
  - Keratitis [Recovering/Resolving]
